FAERS Safety Report 18025060 (Version 1)
Quarter: 2020Q3

REPORT INFORMATION
  Report Type: Spontaneous
  Country: US (occurrence: US)
  Receive Date: 20200715
  Receipt Date: 20200715
  Transmission Date: 20201103
  Serious: No
  Sender: FDA-Public Use
  Company Number: US-PFIZER INC-2020269982

PATIENT
  Sex: Female

DRUGS (2)
  1. IPILIMUMAB/NIVOLUMAB [Concomitant]
     Dosage: UNK
  2. INLYTA [Suspect]
     Active Substance: AXITINIB
     Dosage: UNK

REACTIONS (4)
  - Stomatitis [Unknown]
  - Fatigue [Unknown]
  - Weight decreased [Unknown]
  - Fungal infection [Unknown]
